FAERS Safety Report 4763755-2 (Version None)
Quarter: 2005Q3

REPORT INFORMATION
  Report Type: 
  Country: None (occurrence: None)
  Receive Date: 20050908
  Receipt Date: 20050830
  Transmission Date: 20060218
  Serious: Yes (Other)
  Sender: FDA-Public Use
  Company Number: PHFR2005GB02882

PATIENT
  Age: 38 Year
  Sex: Female

DRUGS (6)
  1. METFORMIN [Suspect]
     Indication: POLYCYSTIC OVARIES
     Dosage: 500 MG, TID
     Route: 048
     Dates: start: 20050621
  2. CARBAMAZEPINE [Suspect]
     Dosage: 400 MG, QD
     Route: 048
     Dates: start: 20050621
  3. PAROXETINE HCL [Concomitant]
     Dosage: 40MG NOCTE
     Route: 065
  4. MELOXICAM [Concomitant]
     Dosage: 15 MG, QD
     Route: 065
  5. MEBEVERINE [Concomitant]
     Dosage: 135 MG, TID
     Route: 065
  6. SANOMIGRAN [Suspect]
     Indication: MIGRAINE
     Dosage: 500 MG, TID NOCTE
     Route: 048
     Dates: start: 20050621

REACTIONS (2)
  - DRUG INTERACTION [None]
  - DYSKINESIA [None]
